FAERS Safety Report 4439901-7 (Version None)
Quarter: 2004Q3

REPORT INFORMATION
  Report Type: 
  Country: None (occurrence: None)
  Receive Date: 20040902
  Receipt Date: 20040803
  Transmission Date: 20050211
  Serious: Yes (Life-Threatening)
  Sender: FDA-Public Use
  Company Number: US-MERCK-0408USA00296

PATIENT
  Age: 63 Year
  Sex: Female

DRUGS (11)
  1. NORVASC [Concomitant]
     Route: 065
  2. ASPIRIN [Concomitant]
     Route: 065
  3. PLAVIX [Concomitant]
     Route: 065
  4. FOLTX [Concomitant]
     Route: 065
  5. NEURONTIN [Concomitant]
     Route: 065
  6. GLUCOPHAGE [Concomitant]
     Route: 065
  7. METOPROLOL [Concomitant]
     Route: 065
  8. BENICAR [Concomitant]
     Route: 065
  9. PROTONIX [Concomitant]
     Route: 065
  10. ZOCOR [Suspect]
     Indication: HYPERCHOLESTEROLAEMIA
     Route: 048
     Dates: start: 20040407
  11. VITAMINS (UNSPECIFIED) [Concomitant]
     Route: 065

REACTIONS (1)
  - BLOOD TRIGLYCERIDES INCREASED [None]
